FAERS Safety Report 14971225 (Version 1)
Quarter: 2018Q2

REPORT INFORMATION
  Report Type: Spontaneous
  Country: GB (occurrence: PT)
  Receive Date: 20180604
  Receipt Date: 20180604
  Transmission Date: 20180711
  Serious: Yes (Other)
  Sender: FDA-Public Use
  Company Number: PT-FRESENIUS KABI-FK201806149

PATIENT
  Age: 47 Year
  Sex: Female

DRUGS (6)
  1. ROCURONIUM [Concomitant]
     Active Substance: ROCURONIUM BROMIDE
     Indication: SHOULDER ARTHROPLASTY
     Route: 042
     Dates: start: 20170118
  2. RANITIDINE. [Concomitant]
     Active Substance: RANITIDINE
     Indication: SHOULDER ARTHROPLASTY
     Dates: start: 20170118
  3. PROPOFOL (MANUFACTURER UNKNOWN) [Suspect]
     Active Substance: PROPOFOL
     Indication: SHOULDER ARTHROPLASTY
     Route: 042
     Dates: start: 20170118
  4. ONDANSETRON [Concomitant]
     Active Substance: ONDANSETRON
     Indication: SHOULDER ARTHROPLASTY
     Route: 042
     Dates: start: 20170118
  5. METOCLOPRAMIDE. [Concomitant]
     Active Substance: METOCLOPRAMIDE
     Indication: SHOULDER ARTHROPLASTY
     Route: 042
     Dates: start: 20170118
  6. FENTANYL. [Concomitant]
     Active Substance: FENTANYL
     Indication: SHOULDER ARTHROPLASTY
     Route: 042
     Dates: start: 20170118

REACTIONS (4)
  - Hypertension [Recovered/Resolved]
  - Rash [Recovered/Resolved]
  - Tachycardia [Recovered/Resolved]
  - Rash maculo-papular [Recovered/Resolved]

NARRATIVE: CASE EVENT DATE: 20170118
